FAERS Safety Report 6182072-X (Version None)
Quarter: 2009Q2

REPORT INFORMATION
  Report Type: 
  Country: None (occurrence: None)
  Receive Date: 20090507
  Receipt Date: 20090428
  Transmission Date: 20091009
  Serious: Yes (Other)
  Sender: FDA-Public Use
  Company Number: CA-PFIZER INC-2009205417

PATIENT

DRUGS (3)
  1. LYRICA [Suspect]
     Dosage: UNK
  2. CELEBREX [Suspect]
     Dosage: UNK
  3. ULTRAM [Suspect]
     Dosage: UNK

REACTIONS (6)
  - DRUG INEFFECTIVE [None]
  - ILL-DEFINED DISORDER [None]
  - INSOMNIA [None]
  - MUSCULOSKELETAL STIFFNESS [None]
  - PAIN [None]
  - SPINAL OSTEOARTHRITIS [None]
